FAERS Safety Report 9827027 (Version 1)
Quarter: 2014Q1

REPORT INFORMATION
  Report Type: Spontaneous
  Country: US (occurrence: US)
  Receive Date: 20140117
  Receipt Date: 20140117
  Transmission Date: 20141002
  Serious: No
  Sender: FDA-Public Use
  Company Number: US-TEVA-456814USA

PATIENT
  Age: 86 Year
  Sex: Female

DRUGS (3)
  1. PROAIR HFA [Suspect]
     Indication: BRONCHITIS
     Route: 055
  2. CORICIDIN [Concomitant]
  3. ANTIBIOTIC [Concomitant]

REACTIONS (1)
  - Cough [Not Recovered/Not Resolved]
